FAERS Safety Report 9277413 (Version 4)
Quarter: 2013Q2

REPORT INFORMATION
  Report Type: Spontaneous
  Country: DE (occurrence: DE)
  Receive Date: 20130508
  Receipt Date: 20130529
  Transmission Date: 20140414
  Serious: Yes (Hospitalization, Other)
  Sender: FDA-Public Use
  Company Number: DE-ROCHE-1219628

PATIENT
  Age: 77 Year
  Sex: Male
  Weight: 76 kg

DRUGS (6)
  1. MABTHERA [Suspect]
     Indication: B-CELL LYMPHOMA
     Route: 030
     Dates: start: 20100421, end: 20100901
  2. MABTHERA [Suspect]
     Route: 042
     Dates: start: 20101129, end: 20130114
  3. BENDAMUSTINE [Concomitant]
     Indication: B-CELL LYMPHOMA
     Route: 065
     Dates: start: 20100421, end: 20100901
  4. BISOPROLOL [Concomitant]
     Indication: HYPERTENSION
     Route: 048
  5. ENALAPRIL [Concomitant]
     Route: 048
  6. SIMVASTATIN [Concomitant]
     Route: 048

REACTIONS (4)
  - Progressive multifocal leukoencephalopathy [Recovered/Resolved]
  - Monoplegia [Not Recovered/Not Resolved]
  - Monoplegia [Not Recovered/Not Resolved]
  - Hemiparesis [Not Recovered/Not Resolved]
